FAERS Safety Report 8860927 (Version 2)
Quarter: 2012Q4

REPORT INFORMATION
  Report Type: 
  Country: DE (occurrence: DE)
  Receive Date: 20121025
  Receipt Date: 20121116
  Transmission Date: 20130627
  Serious: Yes (Other)
  Sender: FDA-Public Use
  Company Number: DE-ROCHE-1149092

PATIENT
  Age: 17 Year
  Sex: Male
  Weight: 77.8 kg

DRUGS (3)
  1. OMALIZUMAB [Suspect]
     Indication: ASTHMA
     Route: 058
     Dates: start: 20120118, end: 20120525
  2. VIANI FORTE [Concomitant]
     Route: 065
     Dates: start: 2009
  3. SALBUTAMOL [Concomitant]
     Route: 065
     Dates: start: 2009

REACTIONS (10)
  - Anaphylactic reaction [Recovered/Resolved]
  - Asthma [Recovered/Resolved]
  - Wheezing [Recovered/Resolved]
  - Cough [Recovered/Resolved]
  - Erythema [Recovered/Resolved]
  - Urticaria [Recovered/Resolved]
  - Sneezing [Recovered/Resolved]
  - Flushing [Recovered/Resolved]
  - Rash [Recovered/Resolved]
  - Pruritus [Recovered/Resolved]
